FAERS Safety Report 5020303-X (Version None)
Quarter: 2006Q2

REPORT INFORMATION
  Report Type: 
  Country: None (occurrence: None)
  Receive Date: 20060602
  Receipt Date: 20060519
  Transmission Date: 20061013
  Serious: Yes (Other)
  Sender: FDA-Public Use
  Company Number: GXKR2006TR02854

PATIENT
  Age: 38 Year
  Sex: Female

DRUGS (8)
  1. PREDNISOLONE [Suspect]
     Indication: RENAL TRANSPLANT
     Dosage: 500 + 30 + 25 + 15 + 10 + 5 MG - SEE IMAGE
  2. PREDNISOLONE [Suspect]
     Indication: RENAL TRANSPLANT
     Dosage: 500 + 30 + 25 + 15 + 10 + 5 MG - SEE IMAGE
  3. PREDNISOLONE [Suspect]
     Indication: RENAL TRANSPLANT
     Dosage: 500 + 30 + 25 + 15 + 10 + 5 MG - SEE IMAGE
  4. PREDNISOLONE [Suspect]
     Indication: RENAL TRANSPLANT
     Dosage: 500 + 30 + 25 + 15 + 10 + 5 MG - SEE IMAGE
  5. PREDNISOLONE [Suspect]
     Indication: RENAL TRANSPLANT
     Dosage: 500 + 30 + 25 + 15 + 10 + 5 MG - SEE IMAGE
  6. CYCLOSPORINE [Suspect]
     Indication: RENAL TRANSPLANT
     Dosage: 100 MG, DAY
  7. MYCOPHENOLATE MOFETIL [Concomitant]
  8. ZENAPAX [Concomitant]

REACTIONS (8)
  - BLOOD ALKALINE PHOSPHATASE INCREASED [None]
  - BLOOD PARATHYROID HORMONE INCREASED [None]
  - MUSCULAR WEAKNESS [None]
  - MUSCULOSKELETAL DISCOMFORT [None]
  - OSTEONECROSIS [None]
  - OSTEOPOROSIS [None]
  - PAIN IN EXTREMITY [None]
  - SHOULDER PAIN [None]
